FAERS Safety Report 6050376-7 (Version None)
Quarter: 2009Q1

REPORT INFORMATION
  Report Type: 
  Country: None (occurrence: None)
  Receive Date: 20090126
  Receipt Date: 20090114
  Transmission Date: 20090719
  Serious: Yes (Other)
  Sender: FDA-Public Use
  Company Number: DE-JNJFOC-20090103274

PATIENT

DRUGS (2)
  1. DOXORUBICIN HCL [Suspect]
     Indication: BRAIN NEOPLASM MALIGNANT
     Route: 042
  2. TOPOTECAN [Suspect]
     Indication: BRAIN NEOPLASM MALIGNANT
     Route: 048

REACTIONS (1)
  - HYPERSENSITIVITY [None]
